FAERS Safety Report 5423996-8 (Version None)
Quarter: 2007Q3

REPORT INFORMATION
  Report Type: 
  Country: None (occurrence: None)
  Receive Date: 20070727
  Receipt Date: 20070504
  Transmission Date: 20080115
  Serious: No
  Sender: FDA-Public Use
  Company Number: 263425

PATIENT
  Age: 56 Year
  Sex: Female

DRUGS (2)
  1. LEVEMIR [Suspect]
     Indication: INSULIN-REQUIRING TYPE II DIABETES MELLITUS
     Dosage: 20 IU, QD, SUBCUTANEOUS ; 30 IU, QD, SUBCUTANEOUS ; 40 IU, QD, SUBCUTANEOUS
     Route: 058
     Dates: end: 20070101
  2. LEVEMIR [Suspect]
     Indication: INSULIN-REQUIRING TYPE II DIABETES MELLITUS
     Dosage: 20 IU, QD, SUBCUTANEOUS ; 30 IU, QD, SUBCUTANEOUS ; 40 IU, QD, SUBCUTANEOUS
     Route: 058
     Dates: end: 20070101

REACTIONS (4)
  - ANORECTAL DISORDER [None]
  - EYE PRURITUS [None]
  - INJECTION SITE PAIN [None]
  - VULVOVAGINAL PRURITUS [None]
